FAERS Safety Report 8428874-8 (Version None)
Quarter: 2012Q2

REPORT INFORMATION
  Report Type: 
  Country: None (occurrence: None)
  Receive Date: 20120612
  Receipt Date: 20120607
  Transmission Date: 20120825
  Serious: Yes (Hospitalization)
  Sender: FDA-Public Use
  Company Number: 2012SP001574

PATIENT
  Age: 48 Year
  Sex: Female

DRUGS (6)
  1. LATUDA [Suspect]
     Indication: SCHIZOPHRENIA, PARANOID TYPE
     Route: 048
     Dates: start: 20110802, end: 20110811
  2. LATUDA [Suspect]
     Route: 048
     Dates: start: 20120515
  3. RISPERDAL [Suspect]
     Indication: SCHIZOPHRENIA, PARANOID TYPE
     Dates: start: 20111122, end: 20120529
  4. LAMICTAL [Concomitant]
     Indication: SCHIZOPHRENIA, PARANOID TYPE
     Dates: start: 20111201
  5. COGENTIN [Concomitant]
     Indication: PRODUCT USED FOR UNKNOWN INDICATION
     Dates: start: 20111122
  6. LATUDA [Suspect]
     Route: 048
     Dates: start: 20110811, end: 20120515

REACTIONS (3)
  - SCHIZOPHRENIA, PARANOID TYPE [None]
  - PAIN IN EXTREMITY [None]
  - WEIGHT INCREASED [None]
